FAERS Safety Report 5187335-2 (Version None)
Quarter: 2006Q4

REPORT INFORMATION
  Report Type: 
  Country: None (occurrence: None)
  Receive Date: 20061214
  Receipt Date: 20061201
  Transmission Date: 20070319
  Serious: Yes (Other)
  Sender: FDA-Public Use
  Company Number: 2006138305

PATIENT
  Age: 76 Year
  Sex: Female

DRUGS (7)
  1. PROVERA [Suspect]
     Indication: APPETITE DISORDER
     Dosage: 400 MG (200 MG,2 IN 1 D), ORAL
     Route: 048
     Dates: start: 20061104
  2. GLICLAZIDE [Concomitant]
  3. CAPECITABINE [Concomitant]
  4. SORAFENIB TOSILATE [Concomitant]
  5. MORPHINE SULFATE [Concomitant]
  6. METOCLOPRAMIDE [Concomitant]
  7. SIMVASTATIN [Concomitant]

REACTIONS (2)
  - BLOOD GLUCOSE DECREASED [None]
  - LETHARGY [None]
